FAERS Safety Report 7281059-3 (Version None)
Quarter: 2011Q1

REPORT INFORMATION
  Report Type: 
  Country: None (occurrence: None)
  Receive Date: 20110208
  Receipt Date: 20110131
  Transmission Date: 20110831
  Serious: Yes (Death)
  Sender: FDA-Public Use
  Company Number: CHPA2011US01891

PATIENT
  Age: 39 Year
  Sex: Female

DRUGS (4)
  1. ACETAMINOPHEN [Suspect]
     Route: 048
  2. METFORMIN [Suspect]
     Route: 048
  3. THIAZOLIDINEDIONES [Suspect]
     Route: 048
  4. SALICYLATES [Suspect]
     Route: 048

REACTIONS (1)
  - COMPLETED SUICIDE [None]
